FAERS Safety Report 5558670-0 (Version None)
Quarter: 2007Q4

REPORT INFORMATION
  Report Type: 
  Country: None (occurrence: None)
  Receive Date: 20071214
  Receipt Date: 20071204
  Transmission Date: 20080405
  Serious: Yes (Other)
  Sender: FDA-Public Use
  Company Number: US-PFIZER INC-2007102831

PATIENT
  Sex: Female
  Weight: 81.8 kg

DRUGS (11)
  1. CHANTIX [Suspect]
     Indication: SMOKING CESSATION THERAPY
  2. METHOTREXATE [Concomitant]
  3. ARAVA [Concomitant]
  4. THYROID TAB [Concomitant]
  5. CYMBALTA [Concomitant]
  6. REMERON [Concomitant]
  7. POTASSIUM CHLORIDE [Concomitant]
  8. FOLIC ACID [Concomitant]
  9. LISINOPRIL [Concomitant]
  10. VITAMINS [Concomitant]
  11. DRUG, UNSPECIFIED [Concomitant]

REACTIONS (3)
  - ABNORMAL DREAMS [None]
  - LUNG OPERATION [None]
  - VOMITING [None]
